FAERS Safety Report 10901485 (Version 1)
Quarter: 2015Q1

REPORT INFORMATION
  Report Type: Spontaneous
  Country: FR (occurrence: FR)
  Receive Date: 20150310
  Receipt Date: 20150310
  Transmission Date: 20150721
  Serious: Yes (Death, Congenital Anomaly)
  Sender: FDA-Public Use
  Company Number: FR-RANBAXY-2015US-94012

PATIENT

DRUGS (2)
  1. HYDROCHLOROTHIAZIDE. [Suspect]
     Active Substance: HYDROCHLOROTHIAZIDE
     Indication: HYPERTENSION
     Dosage: UNK
     Route: 064
  2. VALSARTAN. [Suspect]
     Active Substance: VALSARTAN
     Indication: HYPERTENSION
     Dosage: UNK
     Route: 064

REACTIONS (10)
  - Foetal exposure during pregnancy [Unknown]
  - Foot deformity [Unknown]
  - Renal aplasia [Unknown]
  - Microcephaly [Unknown]
  - Cranial sutures widening [Unknown]
  - Deformity [Unknown]
  - Kidney enlargement [Unknown]
  - Cerebral ventricle dilatation [Unknown]
  - Oligohydramnios [Unknown]
  - Foetal death [Fatal]
